FAERS Safety Report 9924072 (Version 1)
Quarter: 2014Q1

REPORT INFORMATION
  Report Type: Spontaneous
  Country: NL (occurrence: NL)
  Receive Date: 20140225
  Receipt Date: 20140225
  Transmission Date: 20141002
  Serious: Yes (Hospitalization, Other)
  Sender: FDA-Public Use
  Company Number: NL-009507513-1402NLD010863

PATIENT
  Age: 59 Year
  Sex: Male
  Weight: 90 kg

DRUGS (11)
  1. AMITRIPTYLINE HYDROCHLORIDE [Suspect]
     Indication: PAIN
     Dosage: 75 MG, QD
     Route: 048
     Dates: start: 20130607
  2. LINEZOLID [Interacting]
     Indication: INFECTION
     Dosage: 1 DF, BID,CONCENTRATION-2MG/ML
     Route: 042
     Dates: start: 20140128, end: 20140203
  3. BUDESONIDE [Concomitant]
     Dosage: 1 DF, BID
  4. MEROPENEM [Concomitant]
     Dosage: 1 DF, TID
  5. ACENOCOUMAROL [Concomitant]
     Dosage: UNK
  6. FENTANYL [Concomitant]
     Dosage: UNK, HS
     Route: 040
  7. MIDAZOLAM [Concomitant]
     Dosage: CONCENTRATION-5MG/ML
  8. ACETAMINOPHEN [Concomitant]
     Dosage: 500 MG, QID
     Route: 048
  9. ZOPICLONE [Concomitant]
  10. NEBIVOLOL [Concomitant]
     Dosage: 2.5 MG, UNK
  11. GLYCOPYRROLATE [Concomitant]
     Dosage: 1 MG, TID

REACTIONS (4)
  - Serotonin syndrome [Recovering/Resolving]
  - Body temperature increased [Recovering/Resolving]
  - Mydriasis [Recovering/Resolving]
  - Drug interaction [Recovering/Resolving]
